FAERS Safety Report 9117791 (Version 1)
Quarter: 2013Q1

REPORT INFORMATION
  Report Type: Spontaneous
  Country: US (occurrence: US)
  Receive Date: 20130225
  Receipt Date: 20130225
  Transmission Date: 20140127
  Serious: Yes (Other)
  Sender: FDA-Public Use
  Company Number: US-009507513-1302USA007663

PATIENT
  Age: 61 Year
  Sex: Female

DRUGS (9)
  1. JANUVIA [Suspect]
     Indication: TYPE 2 DIABETES MELLITUS
     Dosage: 100 MG, QD
     Route: 048
     Dates: start: 20110805, end: 20130130
  2. GLIPIZIDE [Concomitant]
  3. LANTIS HUMALOG [Concomitant]
  4. ZOLOFT [Concomitant]
  5. LISINOPRIL [Concomitant]
  6. TERBUTALINE SULFATE [Concomitant]
  7. TRAMADOL HYDROCHLORIDE [Concomitant]
  8. ALBUTEROL SULFATE [Concomitant]
  9. ZINC (UNSPECIFIED) [Concomitant]

REACTIONS (2)
  - Pancreatic carcinoma [Unknown]
  - Anxiety [Unknown]
